FAERS Safety Report 20970322 (Version 1)
Quarter: 2022Q2

REPORT INFORMATION
  Report Type: Spontaneous
  Country: NL (occurrence: NL)
  Receive Date: 20220616
  Receipt Date: 20220616
  Transmission Date: 20220721
  Serious: Yes (Hospitalization, Other)
  Sender: FDA-Public Use
  Company Number: None

PATIENT
  Age: 73 Year
  Sex: Female
  Weight: 68 kg

DRUGS (12)
  1. PRIVIGEN [Suspect]
     Active Substance: HUMAN IMMUNOGLOBULIN G
     Indication: Inclusion body myositis
     Dosage: 30 GRAM ONCE EVERY 6 WEEKS
     Route: 065
     Dates: start: 20180314, end: 20211207
  2. LOPERAMIDE [Concomitant]
     Active Substance: LOPERAMIDE
     Dosage: CAPSULE, 2 MG (MILLIGRAM)
  3. CALCIUM CARBONATE\CHOLECALCIFEROL [Concomitant]
     Active Substance: CALCIUM CARBONATE\CHOLECALCIFEROL
     Dosage: 2.5 G (GRAM)/880 UNITS
  4. NATRIUM HYDROGENCARBONATE [Concomitant]
     Dosage: 500 MILLIGRAM
  5. APIXABAN [Concomitant]
     Active Substance: APIXABAN
     Dosage: 5 MG (MILLIGRAM)
  6. METOCLOPRAMIDE [Concomitant]
     Active Substance: METOCLOPRAMIDE
     Dosage: 10 MILLIGRAM
  7. OMEPRAZOLE [Concomitant]
     Active Substance: OMEPRAZOLE
     Dosage: 20 MILLIGRAM
  8. INSULIN GLARGINE [Concomitant]
     Active Substance: INSULIN GLARGINE
     Dosage: 100 UNITS/ML (UNITS PER MILLILITRE)
  9. INSULIN ASPART [Concomitant]
     Active Substance: INSULIN ASPART
     Dosage: 100 UNITS/ML (UNITS PER MILLILITRE)
  10. PANCRELIPASE AMYLASE\PANCRELIPASE LIPASE\PANCRELIPASE PROTEASE [Concomitant]
     Active Substance: PANCRELIPASE AMYLASE\PANCRELIPASE LIPASE\PANCRELIPASE PROTEASE
     Dosage: 25000/40000/1600 FE
  11. POLYETHYLENE GLYCOLS [Concomitant]
     Active Substance: POLYETHYLENE GLYCOLS
     Dosage: POWDER FOR DRINK
  12. POTASSIUM CHLORIDE [Concomitant]
     Active Substance: POTASSIUM CHLORIDE
     Dosage: REGULATED RELEASE TABLET, 600 MG (MILLIGRAM)

REACTIONS (4)
  - Acute kidney injury [Unknown]
  - Metabolic acidosis [Not Recovered/Not Resolved]
  - No adverse event [Unknown]
  - Off label use [Unknown]

NARRATIVE: CASE EVENT DATE: 20210723
